FAERS Safety Report 16282499 (Version 1)
Quarter: 2019Q2

REPORT INFORMATION
  Report Type: Report from Study
  Country: US (occurrence: US)
  Receive Date: 20190507
  Receipt Date: 20190507
  Transmission Date: 20190711
  Serious: Yes (Hospitalization, Other)
  Sender: FDA-Public Use
  Company Number: US-ASTRAZENECA-2016SE37027

PATIENT
  Age: 74 Year
  Sex: Male
  Weight: 78 kg

DRUGS (2)
  1. LYNPARZA [Suspect]
     Active Substance: OLAPARIB
     Indication: PROSTATE CANCER
     Dosage: 50.0MG UNKNOWN
     Route: 048
     Dates: start: 20180729
  2. LYNPARZA [Suspect]
     Active Substance: OLAPARIB
     Indication: PROSTATE CANCER
     Dosage: 50.0MG UNKNOWN
     Route: 048
     Dates: start: 20180729

REACTIONS (7)
  - Dehydration [Unknown]
  - Product use issue [Unknown]
  - Product dose omission [Unknown]
  - Brain neoplasm malignant [Not Recovered/Not Resolved]
  - Blood calcium increased [Unknown]
  - Metastases to pelvis [Unknown]
  - Off label use [Unknown]

NARRATIVE: CASE EVENT DATE: 20160325
